FAERS Safety Report 4348918-2 (Version None)
Quarter: 2004Q1

REPORT INFORMATION
  Report Type: 
  Country: None (occurrence: None)
  Receive Date: 20040325
  Receipt Date: 20040216
  Transmission Date: 20041129
  Serious: No
  Sender: FDA-Public Use
  Company Number: USA040259436

PATIENT
  Age: 91 Year
  Sex: Female
  Weight: 36 kg

DRUGS (2)
  1. FORTEO [Suspect]
     Dates: start: 20040116
  2. CALCIUM [Concomitant]

REACTIONS (2)
  - GASTROOESOPHAGEAL REFLUX DISEASE [None]
  - NAUSEA [None]
